FAERS Safety Report 4178826 (Version 2)
Quarter: 2020Q3

REPORT INFORMATION
  Report Type: Report from Study
  Country: IT (occurrence: IT)
  Receive Date: 20040715
  Receipt Date: 20060426
  Transmission Date: 20201105
  Serious: Yes (Death)
  Sender: FDA-Public Use
  Company Number: IT-JNJFOC-20040603812

PATIENT
  Age: 58 Year
  Sex: Female

DRUGS (3)
  1. REOPRO [Suspect]
     Active Substance: ABCIXIMAB
     Route: 042
  2. REOPRO [Suspect]
     Active Substance: ABCIXIMAB
     Route: 042
  3. SOTALOL HYDROCHLORIDE. [Concomitant]
     Active Substance: SOTALOL HYDROCHLORIDE

REACTIONS (6)
  - Brain death [None]
  - Haemorrhagic transformation stroke [Fatal]
  - Drug interaction [None]
  - Ischaemic stroke [None]
  - Intraventricular haemorrhage [Fatal]
  - Cerebral atrophy [None]

NARRATIVE: CASE EVENT DATE: 20040611
